FAERS Safety Report 13102622 (Version 2)
Quarter: 2017Q2

REPORT INFORMATION
  Report Type: Spontaneous
  Country: US (occurrence: US)
  Receive Date: 20170110
  Receipt Date: 20170430
  Transmission Date: 20170830
  Serious: No
  Sender: FDA-Public Use
  Company Number: US-ELI_LILLY_AND_COMPANY-US201701001121

PATIENT
  Age: 74 Year
  Sex: Female

DRUGS (26)
  1. HUMALOG [Suspect]
     Active Substance: INSULIN LISPRO
     Dosage: 6 U, LUNCH
     Route: 065
  2. SIMVASTATIN. [Concomitant]
     Active Substance: SIMVASTATIN
     Dosage: 40 MG, EACH EVENING
     Route: 048
  3. HUMALOG [Suspect]
     Active Substance: INSULIN LISPRO
     Dosage: 7 U, BEDTIME
     Route: 065
     Dates: start: 2013
  4. HUMALOG [Suspect]
     Active Substance: INSULIN LISPRO
     Dosage: 7 U, BEDTIME
     Route: 065
  5. HUMALOG [Suspect]
     Active Substance: INSULIN LISPRO
     Dosage: 7 U, BEDTIME
     Route: 065
  6. OXYBUTYNIN [Concomitant]
     Active Substance: OXYBUTYNIN
     Dosage: 1 DF, TID
     Route: 048
  7. HUMALOG [Suspect]
     Active Substance: INSULIN LISPRO
     Dosage: 8 U, DINNER
     Route: 065
     Dates: start: 2013
  8. HUMALOG [Suspect]
     Active Substance: INSULIN LISPRO
     Dosage: 6 U, EACH MORNING
     Route: 065
  9. OSCAL 500-D [Concomitant]
     Dosage: 1 DF, QD
     Route: 048
  10. HUMALOG [Suspect]
     Active Substance: INSULIN LISPRO
     Dosage: 6 U, LUNCH
     Route: 065
     Dates: start: 2013
  11. HUMALOG [Suspect]
     Active Substance: INSULIN LISPRO
     Dosage: 6 U, EACH MORNING
     Route: 065
  12. HUMALOG [Suspect]
     Active Substance: INSULIN LISPRO
     Dosage: 6 U, LUNCH
     Route: 065
  13. LOSARTAN POTASSIUM. [Concomitant]
     Active Substance: LOSARTAN POTASSIUM
     Dosage: 100 MG, QD
     Route: 048
  14. HUMALOG [Suspect]
     Active Substance: INSULIN LISPRO
     Indication: TYPE 2 DIABETES MELLITUS
     Dosage: 6 U, EACH MORNING
     Route: 065
     Dates: start: 2013
  15. PREDNISONE. [Suspect]
     Active Substance: PREDNISONE
     Indication: PRODUCT USED FOR UNKNOWN INDICATION
     Dosage: UNK, UNKNOWN
     Route: 065
  16. LASIX [Concomitant]
     Active Substance: FUROSEMIDE
     Dosage: 1 DF, BID
     Route: 048
  17. ZYRTEC [Concomitant]
     Active Substance: CETIRIZINE HYDROCHLORIDE
     Dosage: 1 DF, QD
     Route: 048
  18. CENTRUM MEN 50+ [Concomitant]
     Dosage: UNK, UNKNOWN
     Route: 048
  19. CLOBETASOL PROPIONATE. [Concomitant]
     Active Substance: CLOBETASOL PROPIONATE
     Dosage: 1 DF, BID
     Route: 061
  20. XARELTO [Concomitant]
     Active Substance: RIVAROXABAN
     Dosage: 15 MG, QD
     Route: 048
  21. HUMALOG [Suspect]
     Active Substance: INSULIN LISPRO
     Dosage: 8 U, DINNER
     Route: 065
  22. LEVEMIR [Concomitant]
     Active Substance: INSULIN DETEMIR
     Dosage: 30 U, QD
     Route: 058
  23. GLUCAGON EMERGENCY KIT [Concomitant]
     Active Substance: GLUCAGON
  24. ACICLOVIR [Concomitant]
     Active Substance: ACYCLOVIR
     Dosage: 400 MG, BID
     Route: 048
  25. HUMALOG [Suspect]
     Active Substance: INSULIN LISPRO
     Dosage: 8 U, DINNER
     Route: 065
  26. LEVOTHYROXINE SODIUM. [Concomitant]
     Active Substance: LEVOTHYROXINE SODIUM
     Dosage: 1 DF, QD EVERY MORNING ON AN EMPTY STOMACH
     Route: 048

REACTIONS (2)
  - Drug dose omission [Unknown]
  - Blood glucose increased [Unknown]

NARRATIVE: CASE EVENT DATE: 20161230
